FAERS Safety Report 10537090 (Version 1)
Quarter: 2014Q4

REPORT INFORMATION
  Report Type: Spontaneous
  Country: CH (occurrence: CH)
  Receive Date: 20141022
  Receipt Date: 20141022
  Transmission Date: 20150529
  Serious: Yes (Hospitalization)
  Sender: FDA-Public Use
  Company Number: CH-ASTRAZENECA-2014SE77850

PATIENT
  Age: 721 Month
  Sex: Male
  Weight: 71 kg

DRUGS (5)
  1. BELOC ZOK [Suspect]
     Active Substance: METOPROLOL SUCCINATE
     Route: 048
     Dates: start: 201406
  2. COVERSUM N [Suspect]
     Active Substance: PERINDOPRIL
     Route: 048
     Dates: start: 201406, end: 20140906
  3. BRILIQUE [Suspect]
     Active Substance: TICAGRELOR
     Route: 048
     Dates: start: 201406, end: 201409
  4. ASPIRIN CARDIO [Suspect]
     Active Substance: ASPIRIN
     Route: 048
     Dates: start: 201406
  5. CRESTOR [Suspect]
     Active Substance: ROSUVASTATIN CALCIUM
     Route: 048
     Dates: start: 201406, end: 20140904

REACTIONS (2)
  - Hepatic enzyme increased [Recovering/Resolving]
  - Hepatocellular injury [Recovering/Resolving]

NARRATIVE: CASE EVENT DATE: 201408
